FAERS Safety Report 5392660-6 (Version None)
Quarter: 2007Q3

REPORT INFORMATION
  Report Type: 
  Country: None (occurrence: None)
  Receive Date: 20070720
  Receipt Date: 20070712
  Transmission Date: 20080115
  Serious: Yes (Life-Threatening, Hospitalization, Disabling)
  Sender: FDA-Public Use
  Company Number: DK-ABBOTT-07P-044-0374366-00

PATIENT
  Sex: Female
  Weight: 175 kg

DRUGS (1)
  1. REDUCTIL 15MG [Suspect]
     Indication: WEIGHT CONTROL
     Route: 048
     Dates: start: 20070401, end: 20070501

REACTIONS (1)
  - CEREBRAL INFARCTION [None]
